FAERS Safety Report 15991063 (Version 1)
Quarter: 2019Q1

REPORT INFORMATION
  Report Type: Spontaneous
  Country: US (occurrence: US)
  Receive Date: 20190221
  Receipt Date: 20190221
  Transmission Date: 20190418
  Serious: No
  Sender: FDA-Public Use
  Company Number: US-BAYER-2019-034243

PATIENT
  Age: 72 Year
  Sex: Female

DRUGS (2)
  1. CLIMARA [Suspect]
     Active Substance: ESTRADIOL
     Indication: HOT FLUSH
     Dosage: UNK
     Route: 062
     Dates: start: 201901
  2. CLIMARA [Suspect]
     Active Substance: ESTRADIOL
     Indication: VULVOVAGINAL DRYNESS
     Dosage: UNK
     Route: 062

REACTIONS (5)
  - Joint swelling [Not Recovered/Not Resolved]
  - Vulvovaginal dryness [Not Recovered/Not Resolved]
  - Hot flush [Not Recovered/Not Resolved]
  - Gastric disorder [Not Recovered/Not Resolved]
  - Abdominal pain [Not Recovered/Not Resolved]
